FAERS Safety Report 22837788 (Version 2)
Quarter: 2024Q1

REPORT INFORMATION
  Report Type: Spontaneous
  Country: CA (occurrence: None)
  Receive Date: 20230818
  Receipt Date: 20240130
  Transmission Date: 20240409
  Serious: Yes (Other)
  Sender: FDA-Public Use
  Company Number: CA-ROCHE-3406521

PATIENT
  Age: 2 Year
  Sex: Male
  Weight: 9 kg

DRUGS (4)
  1. SOMATROPIN [Suspect]
     Active Substance: SOMATROPIN
     Indication: Prader-Willi syndrome
     Route: 058
  2. BOSENTAN [Concomitant]
     Active Substance: BOSENTAN
  3. SILDENAFIL [Concomitant]
     Active Substance: SILDENAFIL
  4. SPIRONOLACTONE [Concomitant]
     Active Substance: SPIRONOLACTONE

REACTIONS (1)
  - Lower respiratory tract infection [Not Recovered/Not Resolved]
